FAERS Safety Report 10484282 (Version 3)
Quarter: 2014Q4

REPORT INFORMATION
  Report Type: Report from Study
  Country: HR (occurrence: HR)
  Receive Date: 20140930
  Receipt Date: 20141105
  Transmission Date: 20150528
  Serious: Yes (Other)
  Sender: FDA-Public Use
  Company Number: HR-ASTELLAS-2014EU012840

PATIENT
  Sex: Female

DRUGS (9)
  1. FURSEMID                           /00032601/ [Concomitant]
     Indication: DIURETIC THERAPY
     Dosage: UNK, ONCE DAILY
     Route: 048
     Dates: start: 2007
  2. DECORTIN [Suspect]
     Active Substance: PREDNISONE
     Indication: IMMUNOSUPPRESSANT DRUG THERAPY
     Route: 048
     Dates: start: 20071020
  3. ISOPTIN SR [Concomitant]
     Active Substance: VERAPAMIL HYDROCHLORIDE
     Indication: HYPERTENSION
     Route: 048
     Dates: start: 2013
  4. IMURAN [Suspect]
     Active Substance: AZATHIOPRINE
     Indication: IMMUNOSUPPRESSANT DRUG THERAPY
     Route: 048
     Dates: start: 20140204
  5. PHYSIOTENS [Concomitant]
     Active Substance: MOXONIDINE
     Indication: HYPERTENSION
     Dosage: 0.6 MG, ONCE DAILY
     Route: 048
     Dates: start: 2009
  6. FOLACIN                            /00024201/ [Concomitant]
     Active Substance: FOLIC ACID
     Indication: FOLATE DEFICIENCY
     Dosage: 5 MG, DAILY
     Route: 048
     Dates: start: 2010
  7. RECORMON                           /00928303/ [Concomitant]
     Indication: ANAEMIA
     Dosage: UNK, ONCE DAILY
     Route: 058
     Dates: start: 2008
  8. TACROLIMUS. [Suspect]
     Active Substance: TACROLIMUS
     Indication: IMMUNOSUPPRESSANT DRUG THERAPY
     Route: 048
     Dates: start: 20140204
  9. CONTROLOC                          /01263201/ [Concomitant]
     Indication: PROPHYLAXIS AGAINST GASTROINTESTINAL ULCER
     Route: 048
     Dates: start: 2009

REACTIONS (1)
  - Chronic kidney disease [Not Recovered/Not Resolved]

NARRATIVE: CASE EVENT DATE: 20140514
